FAERS Safety Report 4999791-0 (Version None)
Quarter: 2006Q2

REPORT INFORMATION
  Report Type: 
  Country: None (occurrence: None)
  Receive Date: 20060509
  Receipt Date: 20060424
  Transmission Date: 20061013
  Serious: No
  Sender: FDA-Public Use
  Company Number: 224256

PATIENT
  Age: 84 Year
  Sex: Female
  Weight: 67.6 kg

DRUGS (15)
  1. AVASTIN [Suspect]
     Indication: BREAST CANCER METASTATIC
     Dosage: 681 MG, Q3W, INTRAVENOUS
     Route: 042
     Dates: start: 20060206, end: 20060320
  2. TAXOTERE [Suspect]
     Indication: BREAST CANCER METASTATIC
     Dosage: 105 MG, Q3W, INTRAVENOUS
     Route: 042
     Dates: start: 20060206, end: 20060320
  3. NORVASC [Concomitant]
  4. AVANDIA [Concomitant]
  5. METROGEL [Concomitant]
  6. TRIMETHOPRIM [Concomitant]
  7. DARVOCET (ACETAMINOPHEN, PROPOXYPHENE NAPSYLATE) [Concomitant]
  8. ZOMETA [Concomitant]
  9. ACETAMINOPHEN [Concomitant]
  10. CITRUCEL (METHYLCELLULOSE) [Concomitant]
  11. DECADRON SRC [Concomitant]
  12. ARANESP [Concomitant]
  13. CRANBERRY TABLETS (CRANBERRY) [Concomitant]
  14. VASOTEC [Concomitant]
  15. TRAZODONE HCL [Concomitant]

REACTIONS (1)
  - ENTEROVESICAL FISTULA [None]
